FAERS Safety Report 9445051 (Version 1)
Quarter: 2013Q3

REPORT INFORMATION
  Report Type: Spontaneous
  Country: CA (occurrence: CA)
  Receive Date: 20130807
  Receipt Date: 20130807
  Transmission Date: 20140515
  Serious: Yes (Hospitalization)
  Sender: FDA-Public Use
  Company Number: CA-009507513-1308CAN002725

PATIENT
  Sex: Male

DRUGS (3)
  1. VICTRELIS [Suspect]
     Indication: CHRONIC HEPATITIS C
     Dosage: 200 MG, UNK
     Route: 065
  2. PEGASYS [Concomitant]
     Route: 065
  3. RIBAVIRIN [Concomitant]
     Route: 065

REACTIONS (1)
  - Hyponatraemia [Not Recovered/Not Resolved]
